FAERS Safety Report 8251375-7 (Version None)
Quarter: 2012Q2

REPORT INFORMATION
  Report Type: 
  Country: None (occurrence: None)
  Receive Date: 20120402
  Receipt Date: 20120322
  Transmission Date: 20120825
  Serious: Yes (Death, Life-Threatening, Hospitalization)
  Sender: FDA-Public Use
  Company Number: US-GLAXOSMITHKLINE-Z0003159A

PATIENT
  Age: 71 Year
  Sex: Female
  Weight: 62 kg

DRUGS (2)
  1. PAIN MEDICATION [Concomitant]
     Indication: PAIN
     Route: 042
     Dates: start: 20100204, end: 20100215
  2. VOTRIENT [Suspect]
     Indication: RENAL CELL CARCINOMA
     Dosage: 800MG PER DAY
     Route: 048
     Dates: start: 20091203, end: 20100204

REACTIONS (2)
  - LEFT VENTRICULAR DYSFUNCTION [None]
  - SEPSIS [None]
